FAERS Safety Report 4552864-9 (Version None)
Quarter: 2005Q1

REPORT INFORMATION
  Report Type: 
  Country: None (occurrence: None)
  Receive Date: 20050114
  Receipt Date: 20041005
  Transmission Date: 20050727
  Serious: Yes (Hospitalization, Disabling)
  Sender: FDA-Public Use
  Company Number: US-MERCK-0410USA00747

PATIENT
  Age: 53 Year
  Sex: Female
  Weight: 76 kg

DRUGS (7)
  1. VIOXX [Suspect]
     Indication: ARTHRITIS
     Route: 048
     Dates: start: 20001006
  2. VIOXX [Suspect]
     Indication: EPICONDYLITIS
     Route: 048
     Dates: start: 20001006
  3. PREMARIN [Concomitant]
     Route: 048
  4. PAXIL [Concomitant]
     Route: 048
  5. PRILOSEC [Concomitant]
     Route: 048
  6. LORTAB [Concomitant]
     Route: 048
  7. ZOMIG [Concomitant]
     Route: 048

REACTIONS (5)
  - AMNESIA [None]
  - CONFUSIONAL STATE [None]
  - HYPERTENSION [None]
  - MIGRAINE [None]
  - TRANSIENT ISCHAEMIC ATTACK [None]
